FAERS Safety Report 16010686 (Version 5)
Quarter: 2019Q2

REPORT INFORMATION
  Report Type: Spontaneous
  Country: JP (occurrence: JP)
  Receive Date: 20190227
  Receipt Date: 20190619
  Transmission Date: 20190711
  Serious: Yes (Other)
  Sender: FDA-Public Use
  Company Number: JP-TAKEDA-2019TJP003816

PATIENT
  Age: 66 Year
  Sex: Female
  Weight: 48.3 kg

DRUGS (11)
  1. BIOFERMIN                          /07746301/ [Concomitant]
     Indication: COLITIS ULCERATIVE
     Dosage: 1 DOSAGE FORM, TID
     Route: 048
     Dates: start: 20160715
  2. SHAKUYAKUKANZOTO [Concomitant]
     Active Substance: HERBALS
     Indication: MUSCLE SPASMS
     Dosage: 1 DOSAGE FORM, BID
     Route: 048
     Dates: start: 20190124
  3. VITANEURIN                         /02072701/ [Concomitant]
     Indication: RIB FRACTURE
     Dosage: 1 DOSAGE FORM, BID
     Route: 048
     Dates: start: 20190124
  4. ENTYVIO [Suspect]
     Active Substance: VEDOLIZUMAB
     Dosage: 300 MILLIGRAM
     Route: 041
     Dates: start: 20190214, end: 20190214
  5. METFORMIN HYDROCHLORIDE W/VILDAGLIPTIN [Concomitant]
     Active Substance: METFORMIN HYDROCHLORIDE\VILDAGLIPTIN
     Indication: DIABETES MELLITUS
     Dosage: 1 DOSAGE FORM, BID
     Route: 048
     Dates: start: 20171002
  6. BIOFERMIN                          /07746301/ [Concomitant]
     Dosage: 2 DOSAGE FORM, TID
     Route: 048
  7. BUDESONIDE. [Concomitant]
     Active Substance: BUDESONIDE
     Indication: COLITIS ULCERATIVE
     Dosage: UNK UNK, BID
     Route: 054
     Dates: start: 20180810, end: 20190221
  8. ASACOL [Concomitant]
     Active Substance: MESALAMINE
     Indication: COLITIS ULCERATIVE
     Dosage: 6 DOSAGE FORM
     Route: 048
     Dates: start: 20160715
  9. LANSOPRAZOLE. [Concomitant]
     Active Substance: LANSOPRAZOLE
     Indication: COLITIS ULCERATIVE
     Dosage: 15 MILLIGRAM, QD
     Route: 048
     Dates: start: 20180402
  10. ENTYVIO [Suspect]
     Active Substance: VEDOLIZUMAB
     Indication: COLITIS ULCERATIVE
     Dosage: 300 MILLIGRAM
     Route: 041
     Dates: start: 20190131, end: 20190131
  11. ASACOL [Concomitant]
     Active Substance: MESALAMINE
     Dosage: 3 DOSAGE FORM, TID
     Route: 048
     Dates: start: 2018

REACTIONS (2)
  - Pneumonia bacterial [Recovered/Resolved]
  - Cardiac failure acute [Recovered/Resolved]

NARRATIVE: CASE EVENT DATE: 20190214
